FAERS Safety Report 7433177-4 (Version None)
Quarter: 2011Q2

REPORT INFORMATION
  Report Type: 
  Country: None (occurrence: None)
  Receive Date: 20110422
  Receipt Date: 20110419
  Transmission Date: 20111010
  Serious: Yes (Hospitalization, Other)
  Sender: FDA-Public Use
  Company Number: JP-PFIZER INC-2011075677

PATIENT
  Age: 5 Year
  Sex: Female

DRUGS (2)
  1. HYDROCORTISONE [Suspect]
     Indication: VIITH NERVE PARALYSIS
     Dosage: 10 MG/KG, UNK
  2. ACYCLOVIR [Concomitant]
     Dosage: 5 MG/KG, 3X/DAY

REACTIONS (1)
  - HERPES ZOSTER OTICUS [None]
